FAERS Safety Report 12620895 (Version 2)
Quarter: 2016Q3

REPORT INFORMATION
  Report Type: Report from Study
  Country: JP (occurrence: JP)
  Receive Date: 20160804
  Receipt Date: 20160906
  Transmission Date: 20161109
  Serious: Yes (Death, Hospitalization)
  Sender: FDA-Public Use
  Company Number: JP-BRISTOL-MYERS SQUIBB COMPANY-BMS-2016-063102

PATIENT
  Age: 65 Year
  Sex: Male

DRUGS (2)
  1. NIVOLUMAB [Suspect]
     Active Substance: NIVOLUMAB
     Indication: NON-SMALL CELL LUNG CANCER
     Dosage: 2 MG/KG, Q2WK
     Route: 041
     Dates: start: 20160606
  2. NIVOLUMAB [Suspect]
     Active Substance: NIVOLUMAB
     Dosage: 2 MG/KG, Q2WK
     Route: 041
     Dates: start: 20160620, end: 20160620

REACTIONS (3)
  - Haemoptysis [Fatal]
  - Underdose [Unknown]
  - Malaise [Fatal]

NARRATIVE: CASE EVENT DATE: 20160606
